FAERS Safety Report 5169878-0 (Version None)
Quarter: 2006Q4

REPORT INFORMATION
  Report Type: 
  Country: None (occurrence: None)
  Receive Date: 20061212
  Receipt Date: 20060316
  Transmission Date: 20070319
  Serious: Yes (Other)
  Sender: FDA-Public Use
  Company Number: BR-ROCHE-440725

PATIENT
  Sex: Female
  Weight: 3.2 kg

DRUGS (3)
  1. ROACUTAN [Suspect]
     Indication: ACNE
     Dates: start: 20041015
  2. ROACUTAN [Suspect]
     Dates: end: 20051225
  3. PENTOSAN POLYSULFATE SODIUM [Concomitant]
     Dosage: DRUG REPORTED AS: FIBRASE.
     Dates: start: 20060226, end: 20060315

REACTIONS (5)
  - CAESAREAN SECTION [None]
  - DRUG EXPOSURE BEFORE PREGNANCY [None]
  - NO ADVERSE EFFECT [None]
  - NORMAL NEWBORN [None]
  - TREATMENT NONCOMPLIANCE [None]
